FAERS Safety Report 6720589 (Version 4)
Quarter: 2013Q3

REPORT INFORMATION
  Report Type: Spontaneous
  Country: US (occurrence: US)
  Receive Date: 20080807
  Receipt Date: 20130711
  Transmission Date: 20140515
  Serious: Yes (Other)
  Sender: FDA-Public Use
  Company Number: US-BAYER-200829369NA

PATIENT
  Age: 73 Year
  Sex: Female
  Weight: 73.64 kg

DRUGS (23)
  1. MAGNEVIST [Suspect]
     Indication: ANGIOGRAM
     Route: 042
     Dates: start: 20060629, end: 20060629
  2. MAGNEVIST [Suspect]
     Indication: NUCLEAR MAGNETIC RESONANCE IMAGING BRAIN
  3. OMNISCAN [Suspect]
     Indication: NUCLEAR MAGNETIC RESONANCE IMAGING
  4. OPTIMARK [Suspect]
     Indication: NUCLEAR MAGNETIC RESONANCE IMAGING
  5. MULTIHANCE [GADOBENIC ACID MEGLUMINE] [Suspect]
     Indication: NUCLEAR MAGNETIC RESONANCE IMAGING
  6. PROHANCE [GADOTERIDOL] [Suspect]
     Indication: NUCLEAR MAGNETIC RESONANCE IMAGING
  7. SYNTHROID [Concomitant]
     Indication: HYPOTHYROIDISM
  8. PREDNISONE [Concomitant]
     Indication: ARTHRITIS
     Dates: start: 2005
  9. ALTACE [Concomitant]
     Indication: BLOOD PRESSURE INCREASED
     Dates: start: 2007
  10. LIPITOR [Concomitant]
     Indication: BLOOD CHOLESTEROL INCREASED
     Dates: start: 2005
  11. ENTERIC COATED ASPIRIN [Concomitant]
     Indication: THROMBOSIS PROPHYLAXIS
     Route: 048
  12. IRON [Concomitant]
     Indication: ANAEMIA
  13. VITAMIN B12 [Concomitant]
  14. PLAVIX [Concomitant]
     Indication: THROMBOSIS PROPHYLAXIS
     Dates: start: 200608
  15. NAPROXEN [Concomitant]
     Indication: ARTHRITIS
     Dates: start: 2001
  16. CIPRO [Concomitant]
  17. COLCHICINE [Concomitant]
  18. DERMATOLOGICALS [Concomitant]
     Dosage: APPLIED TO LEGS
     Route: 061
  19. PREMARIN [Concomitant]
  20. ZYRTEC [Concomitant]
  21. PROTONIX [Concomitant]
  22. DARVOCET [Concomitant]
  23. LASIX [Concomitant]

REACTIONS (17)
  - Nephrogenic systemic fibrosis [Not Recovered/Not Resolved]
  - Pain [Not Recovered/Not Resolved]
  - Pain in extremity [Not Recovered/Not Resolved]
  - Skin induration [Not Recovered/Not Resolved]
  - Skin hypertrophy [Not Recovered/Not Resolved]
  - Oedema peripheral [Not Recovered/Not Resolved]
  - Skin lesion [Not Recovered/Not Resolved]
  - Injury [Not Recovered/Not Resolved]
  - Depression [Not Recovered/Not Resolved]
  - Anxiety [Not Recovered/Not Resolved]
  - Anxiety [Not Recovered/Not Resolved]
  - Mobility decreased [Not Recovered/Not Resolved]
  - General physical health deterioration [Not Recovered/Not Resolved]
  - Emotional distress [Not Recovered/Not Resolved]
  - Dry skin [Not Recovered/Not Resolved]
  - Dry eye [Not Recovered/Not Resolved]
  - Ocular hyperaemia [Not Recovered/Not Resolved]
